FAERS Safety Report 16282133 (Version 1)
Quarter: 2019Q2

REPORT INFORMATION
  Report Type: Report from Study
  Country: US (occurrence: US)
  Receive Date: 20190507
  Receipt Date: 20190507
  Transmission Date: 20190711
  Serious: Yes (Other)
  Sender: FDA-Public Use
  Company Number: US-JNJFOC-20190502256

PATIENT
  Age: 75 Year
  Sex: Female

DRUGS (1)
  1. IMBRUVICA [Suspect]
     Active Substance: IBRUTINIB
     Indication: CHRONIC LYMPHOCYTIC LEUKAEMIA
     Route: 048
     Dates: start: 201805

REACTIONS (9)
  - Panniculitis [Recovered/Resolved]
  - Neutrophil count decreased [Unknown]
  - Tooth loss [Unknown]
  - Blood cholesterol increased [Unknown]
  - Stomatitis [Not Recovered/Not Resolved]
  - Neck mass [Recovering/Resolving]
  - White blood cell count increased [Recovered/Resolved]
  - Vulvovaginal human papilloma virus infection [Recovered/Resolved]
  - Mass [Recovering/Resolving]

NARRATIVE: CASE EVENT DATE: 201902
